FAERS Safety Report 23831789 (Version 1)
Quarter: 2024Q2

REPORT INFORMATION
  Report Type: Spontaneous
  Country: US (occurrence: None)
  Receive Date: 20240507
  Receipt Date: 20240507
  Transmission Date: 20240716
  Serious: Yes (unspecified)
  Sender: FDA-Public Use
  Company Number: None

PATIENT
  Age: 65 Year
  Sex: Male
  Weight: 112.1 kg

DRUGS (1)
  1. INFLECTRA [Suspect]
     Active Substance: INFLIXIMAB-DYYB
     Indication: Rheumatoid arthritis
     Route: 042
     Dates: start: 20240422, end: 20240507

REACTIONS (13)
  - Arthralgia [None]
  - Pain [None]
  - Pain in jaw [None]
  - Pruritus [None]
  - Infusion related reaction [None]
  - Pruritus [None]
  - Therapy interrupted [None]
  - Oxygen saturation decreased [None]
  - Blood pressure increased [None]
  - Refusal of treatment by patient [None]
  - Rash [None]
  - Swelling [None]
  - Dizziness [None]
